FAERS Safety Report 10225157 (Version 2)
Quarter: 2014Q2

REPORT INFORMATION
  Report Type: Spontaneous
  Country: GB (occurrence: GB)
  Receive Date: 20140609
  Receipt Date: 20140611
  Transmission Date: 20141212
  Serious: Yes (Death, Hospitalization)
  Sender: FDA-Public Use
  Company Number: GB-PFIZER INC-2014152698

PATIENT
  Age: 7 Year
  Sex: Female

DRUGS (1)
  1. IBUPROFEN [Suspect]
     Indication: SICKLE CELL ANAEMIA
     Dosage: UNK
     Dates: start: 201205

REACTIONS (7)
  - Duodenal perforation [Fatal]
  - Circulatory collapse [Not Recovered/Not Resolved]
  - Peritonitis [Not Recovered/Not Resolved]
  - Shock [Not Recovered/Not Resolved]
  - Abdominal discomfort [Unknown]
  - Helicobacter infection [Unknown]
  - Duodenal ulcer [Unknown]
